FAERS Safety Report 5380729-1 (Version None)
Quarter: 2007Q3

REPORT INFORMATION
  Report Type: 
  Country: None (occurrence: None)
  Receive Date: 20070706
  Receipt Date: 20070704
  Transmission Date: 20080115
  Serious: Yes (Life-Threatening)
  Sender: FDA-Public Use
  Company Number: AU-MERCK-0704AUS00095

PATIENT
  Age: 69 Year
  Sex: Female
  Weight: 100 kg

DRUGS (7)
  1. ZETIA [Suspect]
     Indication: BLOOD CHOLESTEROL INCREASED
     Route: 048
     Dates: start: 20070301, end: 20070401
  2. ZETIA [Suspect]
     Route: 048
     Dates: start: 20070417, end: 20070418
  3. LEVOTHYROXINE SODIUM [Concomitant]
     Route: 065
  4. [THERAPY UNSPECIFIED] [Concomitant]
     Route: 065
  5. ZOTON [Concomitant]
     Indication: DYSPEPSIA
     Route: 065
  6. [THERAPY UNSPECIFIED] [Concomitant]
     Indication: ASTHMA
  7. VITAMINS (UNSPECIFIED) [Concomitant]
     Indication: VITAMIN SUPPLEMENTATION
     Route: 065

REACTIONS (2)
  - ADRENOCORTICAL INSUFFICIENCY ACUTE [None]
  - COUGH [None]
